FAERS Safety Report 17878115 (Version 2)
Quarter: 2020Q2

REPORT INFORMATION
  Report Type: Spontaneous
  Country: DE (occurrence: DE)
  Receive Date: 20200610
  Receipt Date: 20200622
  Transmission Date: 20200714
  Serious: Yes (Hospitalization)
  Sender: FDA-Public Use
  Company Number: DE-ABBVIE-20K-062-3436469-00

PATIENT
  Age: 65 Year
  Sex: Male
  Weight: 65 kg

DRUGS (3)
  1. VITAMIN B12 [Concomitant]
     Active Substance: CYANOCOBALAMIN
     Indication: VITAMIN B12 DEFICIENCY
     Dates: start: 20180604
  2. HUMIRA [Suspect]
     Active Substance: ADALIMUMAB
     Indication: CROHN^S DISEASE
     Route: 058
     Dates: start: 201806, end: 20200617
  3. DEKRISTOL [Concomitant]
     Active Substance: CHOLECALCIFEROL
     Indication: VITAMIN D DEFICIENCY
     Dates: start: 20180821

REACTIONS (3)
  - Intestinal dilatation [Recovered/Resolved]
  - Inflammation [Unknown]
  - Ileal stenosis [Recovered/Resolved]

NARRATIVE: CASE EVENT DATE: 20200603
